FAERS Safety Report 21562132 (Version 1)
Quarter: 2022Q4

REPORT INFORMATION
  Report Type: Spontaneous
  Country: US (occurrence: None)
  Receive Date: 20221104
  Receipt Date: 20221104
  Transmission Date: 20230113
  Serious: No
  Sender: FDA-Public Use
  Company Number: None

PATIENT

DRUGS (2)
  1. HEPARIN SODIUM [Suspect]
     Active Substance: HEPARIN SODIUM
     Dosage: OTHER STRENGTH : 25,000UNITS, 250 M;?
  2. LIDOCAINE [Suspect]
     Active Substance: LIDOCAINE

REACTIONS (3)
  - Product packaging confusion [None]
  - Product label confusion [None]
  - Wrong product stored [None]
